FAERS Safety Report 25745066 (Version 1)
Quarter: 2025Q3

REPORT INFORMATION
  Report Type: Spontaneous
  Country: GB (occurrence: GB)
  Receive Date: 20250901
  Receipt Date: 20250901
  Transmission Date: 20251021
  Serious: Yes (Other)
  Sender: AUROBINDO
  Company Number: GB-MHRA-MED-202508181947345570-ZMGRS

PATIENT
  Age: 59 Year
  Sex: Female

DRUGS (2)
  1. CIPROFLOXACIN [Suspect]
     Active Substance: CIPROFLOXACIN
     Indication: Urinary tract infection
     Dosage: 750 MILLIGRAM, TWO TIMES A DAY
     Route: 065
     Dates: start: 20250623
  2. CIPROFLOXACIN [Suspect]
     Active Substance: CIPROFLOXACIN
     Dosage: 750 MILLIGRAM, TWO TIMES A DAY
     Route: 065
     Dates: start: 20250623

REACTIONS (2)
  - Blindness [Recovered/Resolved]
  - Visual brightness [Recovered/Resolved]

NARRATIVE: CASE EVENT DATE: 20250730
